FAERS Safety Report 8544473-1 (Version None)
Quarter: 2012Q3

REPORT INFORMATION
  Report Type: 
  Country: None (occurrence: None)
  Receive Date: 20120727
  Receipt Date: 20120718
  Transmission Date: 20120928
  Serious: Yes (Hospitalization)
  Sender: FDA-Public Use
  Company Number: FR-ASTRAZENECA-2012SE13089

PATIENT
  Age: 17224 Day
  Sex: Female

DRUGS (2)
  1. ATACAND [Suspect]
     Indication: HYPERTENSION
     Route: 048
     Dates: start: 20050801, end: 20120217
  2. ACETAMINOPHEN [Concomitant]
     Route: 048

REACTIONS (1)
  - MIXED LIVER INJURY [None]
